FAERS Safety Report 17586847 (Version 6)
Quarter: 2021Q3

REPORT INFORMATION
  Report Type: Spontaneous
  Country: US (occurrence: US)
  Receive Date: 20200326
  Receipt Date: 20210714
  Transmission Date: 20211014
  Serious: Yes (Other)
  Sender: FDA-Public Use
  Company Number: US-PFIZER INC-2020124497

PATIENT
  Age: 68 Year
  Sex: Female

DRUGS (2)
  1. METHOTREXATE SODIUM. [Concomitant]
     Active Substance: METHOTREXATE SODIUM
     Dosage: 8 DF, WEEKLY (8 PILLS ONE TIME A WEEK)
  2. XELJANZ XR [Suspect]
     Active Substance: TOFACITINIB CITRATE
     Indication: RHEUMATOID ARTHRITIS
     Dosage: 11 MG, DAILY
     Route: 048
     Dates: start: 202003

REACTIONS (9)
  - Rheumatoid arthritis [Unknown]
  - Somnolence [Unknown]
  - Depressed mood [Unknown]
  - Erythema [Unknown]
  - Dysuria [Unknown]
  - Loss of personal independence in daily activities [Unknown]
  - Decreased interest [Unknown]
  - Lyme disease [Unknown]
  - Drug ineffective [Unknown]

NARRATIVE: CASE EVENT DATE: 2020
